FAERS Safety Report 6483392-1 (Version None)
Quarter: 2009Q4

REPORT INFORMATION
  Report Type: 
  Country: None (occurrence: None)
  Receive Date: 20091123
  Receipt Date: 20090723
  Transmission Date: 20100525
  Serious: No
  Sender: FDA-Public Use
  Company Number: 8049365

PATIENT
  Age: 22 Year
  Sex: Female
  Weight: 52.1 kg

DRUGS (5)
  1. CIMZIA [Suspect]
     Indication: CROHN'S DISEASE
     Dosage: 400 MG SC
     Route: 058
     Dates: start: 20090722
  2. PREDNISONE TAB [Concomitant]
  3. CIPRO [Concomitant]
  4. FLAGYL [Concomitant]
  5. JOLESSA [Concomitant]

REACTIONS (3)
  - INJECTION SITE DISCOLOURATION [None]
  - PAIN IN EXTREMITY [None]
  - PRURITUS [None]
